FAERS Safety Report 7287618-6 (Version None)
Quarter: 2011Q1

REPORT INFORMATION
  Report Type: 
  Country: None (occurrence: None)
  Receive Date: 20110211
  Receipt Date: 20110207
  Transmission Date: 20110831
  Serious: Yes (Death)
  Sender: FDA-Public Use
  Company Number: ES-SANOFI-AVENTIS-200921873GDDC

PATIENT
  Age: 72 Year
  Sex: Male
  Weight: 72.4 kg

DRUGS (7)
  1. AFLIBERCEPT [Suspect]
     Indication: NON-SMALL CELL LUNG CANCER
     Dosage: DOSE UNIT: 6 MG/KG
     Route: 041
     Dates: start: 20090522, end: 20090522
  2. DOCETAXEL [Suspect]
     Indication: NON-SMALL CELL LUNG CANCER
     Dosage: DOSE UNIT: 75 MG/M**2
     Route: 041
     Dates: start: 20090522, end: 20090522
  3. AFLIBERCEPT [Suspect]
     Dosage: DOSE UNIT: 6 MG/KG
     Route: 041
     Dates: start: 20090928, end: 20090928
  4. OMEPRAZOLE [Concomitant]
     Dates: start: 20070911
  5. SIMVASTATIN [Concomitant]
     Dates: start: 20071201
  6. DOCETAXEL [Suspect]
     Dosage: DOSE UNIT: 75 MG/M**2
     Route: 041
     Dates: start: 20090928, end: 20090928
  7. CORTICOSTEROID NOS [Concomitant]

REACTIONS (1)
  - DEATH [None]
